FAERS Safety Report 9135757 (Version 3)
Quarter: 2013Q1

REPORT INFORMATION
  Report Type: Spontaneous
  Country: JP (occurrence: None)
  Receive Date: 20130212
  Receipt Date: 20130222
  Transmission Date: 20140127
  Serious: Yes (Death)
  Sender: FDA-Public Use
  Company Number: TCI2013A00577

PATIENT
  Age: 62 Year
  Sex: Female

DRUGS (2)
  1. NESINA [Suspect]
     Route: 048
  2. AMARYL (GLIMEPIRIDE) [Concomitant]

REACTIONS (1)
  - Death [None]
